FAERS Safety Report 15246049 (Version 2)
Quarter: 2018Q3

REPORT INFORMATION
  Report Type: Spontaneous
  Country: US (occurrence: US)
  Receive Date: 20180806
  Receipt Date: 20180926
  Transmission Date: 20181010
  Serious: No
  Sender: FDA-Public Use
  Company Number: US-PFIZER INC-2018313223

PATIENT
  Age: 62 Year
  Sex: Female
  Weight: 60 kg

DRUGS (1)
  1. LATANOPROST. [Suspect]
     Active Substance: LATANOPROST
     Indication: GLAUCOMA
     Dosage: UNK, DAILY (QHS)
     Route: 047
     Dates: start: 201306

REACTIONS (5)
  - Eye irritation [Recovering/Resolving]
  - Ocular hyperaemia [Unknown]
  - Ocular discomfort [Unknown]
  - Visual impairment [Unknown]
  - Eye pain [Unknown]

NARRATIVE: CASE EVENT DATE: 201807
